FAERS Safety Report 10753400 (Version 1)
Quarter: 2015Q1

REPORT INFORMATION
  Report Type: Report from Study
  Country: MX (occurrence: MX)
  Receive Date: 20150131
  Receipt Date: 20150131
  Transmission Date: 20150721
  Serious: Yes (Hospitalization)
  Sender: FDA-Public Use
  Company Number: MX-ABBVIE-15K-107-1339748-00

PATIENT
  Sex: Female
  Weight: 67 kg

DRUGS (6)
  1. MALIVAL [Concomitant]
     Indication: PAIN
     Dosage: 25 MG/ 215 MG
     Route: 048
     Dates: start: 20140406
  2. SINERGIX [Concomitant]
     Indication: PAIN
     Dosage: 25 MG/10 MG
     Route: 048
     Dates: start: 201401
  3. VITAMIN B COMPLEX [Concomitant]
     Active Substance: CYANOCOBALAMIN\DEXPANTHENOL\NIACINAMIDE\PYRIDOXINE HYDROCHLORIDE\RIBOFLAVIN 5^-PHOSPHATE SODIUM\THIAMINE HYDROCHLORIDE\VITAMIN B COMPLEX
     Indication: PRODUCT USED FOR UNKNOWN INDICATION
     Route: 048
     Dates: start: 2013
  4. AZULFIDINA [Concomitant]
     Indication: ANKYLOSING SPONDYLITIS
     Route: 048
     Dates: start: 20140130
  5. HUMIRA [Suspect]
     Active Substance: ADALIMUMAB
     Indication: ANKYLOSING SPONDYLITIS
     Route: 058
     Dates: start: 20140703, end: 20141216
  6. FOLIC ACID. [Concomitant]
     Active Substance: FOLIC ACID
     Indication: VITAMIN SUPPLEMENTATION
     Route: 048
     Dates: start: 2004

REACTIONS (1)
  - Device dislocation [Not Recovered/Not Resolved]
